FAERS Safety Report 14298398 (Version 1)
Quarter: 2017Q4

REPORT INFORMATION
  Report Type: Spontaneous
  Country: US (occurrence: US)
  Receive Date: 20171218
  Receipt Date: 20171218
  Transmission Date: 20180321
  Serious: Yes (Other)
  Sender: FDA-Public Use
  Company Number: PHEH2017US039619

PATIENT
  Sex: Male

DRUGS (3)
  1. SIGNIFOR [Suspect]
     Active Substance: PASIREOTIDE
     Indication: ACROMEGALY
     Dosage: UNK
     Route: 065
     Dates: start: 201703
  2. SOMAVERT [Suspect]
     Active Substance: PEGVISOMANT
     Indication: ACROMEGALY
     Dosage: 20 MG, QD
     Route: 065
     Dates: start: 20160530
  3. SANDOSTATIN [Suspect]
     Active Substance: OCTREOTIDE ACETATE
     Indication: ACROMEGALY
     Dosage: 10 MG, QD
     Route: 065
     Dates: start: 201511, end: 201703

REACTIONS (4)
  - Visual impairment [Unknown]
  - Vision blurred [Unknown]
  - Blindness [Unknown]
  - Neoplasm progression [Unknown]
